FAERS Safety Report 9828038 (Version 1)
Quarter: 2013Q4

REPORT INFORMATION
  Report Type: Spontaneous
  Country: US (occurrence: None)
  Receive Date: 20131120
  Receipt Date: 20131120
  Transmission Date: 20140711
  Serious: Yes (Other)
  Sender: FDA-Public Use
  Company Number: 1000048308

PATIENT
  Age: 45 Year
  Sex: Male

DRUGS (9)
  1. VIIBRYD [Suspect]
     Indication: DEPRESSION
     Route: 048
     Dates: start: 20130805, end: 20130811
  2. BENICAR HCT (BENICAR HCT)(BENICAR HCT) [Concomitant]
  3. NEXIUM (ESOMEPRAZOLE) (ESOMEPRAZOLE) [Concomitant]
  4. SUPER B COMPLEX (SUPER B COMPLEX) (SUPER B COMPLEX) [Concomitant]
  5. MTV (VITAMINS NOS) (VITAMIN B NOS) [Concomitant]
  6. VITAMIN B12 (CYANOCOBALMIN) (CYANOCOBALMIN) [Concomitant]
  7. VITAMIN D3 (COLECALCIFEROL) (COLECALCIFEROL) [Concomitant]
  8. FISH OIL (FISH OIL) (FISH OIL) [Concomitant]
  9. FOLIC ACID (FOLIC ACID) (FOLIC ACID) [Concomitant]

REACTIONS (4)
  - Anxiety [None]
  - Panic attack [None]
  - Restlessness [None]
  - Insomnia [None]
